FAERS Safety Report 17389028 (Version 1)
Quarter: 2020Q1

REPORT INFORMATION
  Report Type: Spontaneous
  Country: CO (occurrence: CO)
  Receive Date: 20200207
  Receipt Date: 20200207
  Transmission Date: 20200409
  Serious: Yes (Death)
  Sender: FDA-Public Use
  Company Number: CO-PFIZER INC-2020052049

PATIENT
  Sex: Female

DRUGS (1)
  1. REAMPLA [Suspect]
     Active Substance: PALBOCICLIB
     Dosage: UNK
     Route: 048

REACTIONS (3)
  - Malaise [Unknown]
  - Death [Fatal]
  - Pain [Unknown]

NARRATIVE: CASE EVENT DATE: 20200128
